FAERS Safety Report 7728869-3 (Version None)
Quarter: 2011Q3

REPORT INFORMATION
  Report Type: 
  Country: None (occurrence: None)
  Receive Date: 20110831
  Receipt Date: 20110831
  Transmission Date: 20111222
  Serious: Yes (Other)
  Sender: FDA-Public Use
  Company Number: None

PATIENT
  Age: 6 Year
  Sex: Female
  Weight: 23.3 kg

DRUGS (4)
  1. LEVETIRACETAM [Concomitant]
  2. LORAZEPAM [Concomitant]
  3. RANITIDINE [Concomitant]
  4. VANCOMYCIN [Suspect]
     Indication: VASCULITIS
     Dosage: 900 MG Q 6 HRS INTRAVENOUS
     Route: 042
     Dates: start: 20110708, end: 20110721

REACTIONS (2)
  - WHITE BLOOD CELL COUNT DECREASED [None]
  - LYMPHOPENIA [None]
